FAERS Safety Report 11806429 (Version 1)
Quarter: 2015Q4

REPORT INFORMATION
  Report Type: Spontaneous
  Country: FR (occurrence: FR)
  Receive Date: 20151207
  Receipt Date: 20151207
  Transmission Date: 20160305
  Serious: Yes (Disabling)
  Sender: FDA-Public Use
  Company Number: FR-TEVA-614541ISR

PATIENT
  Age: 59 Year
  Sex: Female
  Weight: 70 kg

DRUGS (5)
  1. LEVOFLOXACINE TEVA 500 MG [Suspect]
     Active Substance: LEVOFLOXACIN
     Indication: GENITAL INFECTION FEMALE
     Dosage: 1 DOSAGE FORMS DAILY;
     Route: 048
     Dates: start: 20150925, end: 20150930
  2. LYSANXIA [Concomitant]
     Active Substance: PRAZEPAM
     Indication: OBSESSIVE-COMPULSIVE DISORDER
  3. SECNOL [Concomitant]
     Active Substance: SECNIDAZOLE
     Indication: ANTIBIOTIC THERAPY
     Route: 048
     Dates: start: 20150925, end: 20150925
  4. MEDIGYNE [Concomitant]
     Indication: VULVOVAGINAL DISCOMFORT
     Dosage: 1 DOSAGE FORMS DAILY; 10 DAYS PER MONTH FOR 6 MONTHS
     Route: 067
     Dates: start: 20150925
  5. FLOXYFRAL [Concomitant]
     Active Substance: FLUVOXAMINE
     Indication: OBSESSIVE-COMPULSIVE DISORDER

REACTIONS (5)
  - Activities of daily living impaired [Recovered/Resolved]
  - Visual impairment [Recovered/Resolved]
  - Motor dysfunction [Recovered/Resolved]
  - Hallucination [Recovered/Resolved]
  - Pain [Recovered/Resolved]

NARRATIVE: CASE EVENT DATE: 20150927
